FAERS Safety Report 13007991 (Version 2)
Quarter: 2017Q1

REPORT INFORMATION
  Report Type: Spontaneous
  Country: US (occurrence: US)
  Receive Date: 20161208
  Receipt Date: 20170111
  Transmission Date: 20170428
  Serious: No
  Sender: FDA-Public Use
  Company Number: PHEH2016US031216

PATIENT
  Age: 83 Year
  Sex: Male

DRUGS (2)
  1. COSENTYX [Suspect]
     Active Substance: SECUKINUMAB
     Indication: PSORIASIS
     Dosage: 300 MG, QMO
     Route: 058
     Dates: start: 201601
  2. COSENTYX [Suspect]
     Active Substance: SECUKINUMAB
     Dosage: 300 MG, QMO
     Route: 058
     Dates: start: 201601

REACTIONS (17)
  - Oropharyngeal pain [Unknown]
  - Drug effect incomplete [Unknown]
  - Weight decreased [Recovered/Resolved]
  - Skin atrophy [Unknown]
  - Candida infection [Unknown]
  - Mood altered [Unknown]
  - Depression [Unknown]
  - Oedema [Unknown]
  - Drug eruption [Unknown]
  - Oral mucosal eruption [Not Recovered/Not Resolved]
  - Lip swelling [Not Recovered/Not Resolved]
  - Erythema [Unknown]
  - Mucocutaneous candidiasis [Recovered/Resolved]
  - Aphasia [Not Recovered/Not Resolved]
  - Actinic keratosis [Unknown]
  - Anxiety [Unknown]
  - Cheilitis [Not Recovered/Not Resolved]
